FAERS Safety Report 14526316 (Version 2)
Quarter: 2019Q2

REPORT INFORMATION
  Report Type: Spontaneous
  Country: ES (occurrence: ES)
  Receive Date: 20180213
  Receipt Date: 20190523
  Transmission Date: 20190711
  Serious: Yes (Hospitalization)
  Sender: FDA-Public Use
  Company Number: ES-B.I. PHARMACEUTICALS,INC./RIDGEFIELD-2018-12-000439

PATIENT
  Age: 55 Year
  Sex: Male

DRUGS (3)
  1. MIRAPEXIN [Suspect]
     Active Substance: PRAMIPEXOLE
     Indication: PARKINSON^S DISEASE
     Dosage: 2,36 MG CADA DIA
     Route: 048
     Dates: start: 201605, end: 20180109
  2. QUETIAPINA [Interacting]
     Active Substance: QUETIAPINE
     Indication: PSYCHOTIC DISORDER
     Dosage: 25 MG UNA VEZ AL DIA
     Route: 048
     Dates: start: 20171222, end: 20180106
  3. SINEMET PLUS [Interacting]
     Active Substance: CARBIDOPA\LEVODOPA
     Indication: PARKINSON^S DISEASE
     Dosage: 1 CP 3 VECES AL DIA,  STRENGTH - 25 MG/100 MG
     Route: 048
     Dates: start: 20171222

REACTIONS (2)
  - Contraindicated product prescribed [Recovered/Resolved]
  - Acute psychosis [Recovered/Resolved]

NARRATIVE: CASE EVENT DATE: 20171222
